FAERS Safety Report 5395765-9 (Version None)
Quarter: 2007Q3

REPORT INFORMATION
  Report Type: 
  Country: None (occurrence: None)
  Receive Date: 20070724
  Receipt Date: 20070718
  Transmission Date: 20080115
  Serious: Yes (Disabling, Other)
  Sender: FDA-Public Use
  Company Number: US-ALLERGAN-0608958US

PATIENT
  Sex: Female

DRUGS (6)
  1. BOTOX [Suspect]
     Indication: CLUSTER HEADACHE
     Dosage: 300 UNITS, SINGLE
     Route: 030
     Dates: start: 20061221, end: 20061221
  2. BOTOX [Suspect]
     Dosage: UNK, SINGLE
     Route: 030
     Dates: start: 20060801, end: 20060801
  3. MAXALT [Concomitant]
     Indication: HEADACHE
     Dosage: 25 MG, PRN
     Route: 048
  4. LYRICA [Concomitant]
     Indication: HEADACHE
     Dosage: 75 MG, PRN
     Route: 048
  5. TOPAMAX [Concomitant]
     Indication: MIGRAINE
     Dosage: 25 MG, PRN
     Route: 048
  6. LIDOCAINE [Concomitant]
     Indication: HEADACHE
     Dosage: 4 %, PRN
     Route: 055

REACTIONS (12)
  - AMNESIA [None]
  - ARTHRALGIA [None]
  - COUGH [None]
  - FATIGUE [None]
  - HYPERHIDROSIS [None]
  - JOINT SWELLING [None]
  - MALAISE [None]
  - MIDDLE EAR EFFUSION [None]
  - PARAESTHESIA [None]
  - PYREXIA [None]
  - SOMNOLENCE [None]
  - VOMITING [None]
